FAERS Safety Report 9438074 (Version 1)
Quarter: 2013Q3

REPORT INFORMATION
  Report Type: Spontaneous
  Country: US (occurrence: US)
  Receive Date: 20130802
  Receipt Date: 20130802
  Transmission Date: 20140515
  Serious: No
  Sender: FDA-Public Use
  Company Number: US-BRISTOL-MYERS SQUIBB COMPANY-16794307

PATIENT
  Age: 53 Year
  Sex: Male

DRUGS (3)
  1. WARFARIN SODIUM [Suspect]
     Dosage: RECEIVED LAST 6 MONTHS
  2. METOPROLOL [Concomitant]
  3. MULTIVITAMINS [Concomitant]

REACTIONS (1)
  - Rhinorrhoea [Unknown]
